FAERS Safety Report 4649857-X (Version None)
Quarter: 2005Q2

REPORT INFORMATION
  Report Type: 
  Country: None (occurrence: None)
  Receive Date: 20050428
  Receipt Date: 20050415
  Transmission Date: 20051028
  Serious: Yes (Other)
  Sender: FDA-Public Use
  Company Number: 2005061492

PATIENT
  Sex: Male

DRUGS (1)
  1. BEXTRA [Suspect]
     Indication: POST PROCEDURAL PAIN

REACTIONS (3)
  - BLISTER [None]
  - HEADACHE [None]
  - LIMB OPERATION [None]
